FAERS Safety Report 5697423-X (Version None)
Quarter: 2008Q2

REPORT INFORMATION
  Report Type: 
  Country: None (occurrence: None)
  Receive Date: 20080407
  Receipt Date: 20080401
  Transmission Date: 20081010
  Serious: Yes (Hospitalization, Disabling)
  Sender: FDA-Public Use
  Company Number: PHHO2008DE02686

PATIENT
  Age: 55 Year
  Sex: Female

DRUGS (1)
  1. IMATINIB VS INTERFERON ALPHA [Suspect]
     Indication: CHRONIC MYELOID LEUKAEMIA
     Dosage: 400 MG,
     Route: 048
     Dates: start: 20080212

REACTIONS (4)
  - APHASIA [None]
  - ISCHAEMIA [None]
  - ISCHAEMIC STROKE [None]
  - THROMBOCYTHAEMIA [None]
